FAERS Safety Report 15703741 (Version 2)
Quarter: 2019Q3

REPORT INFORMATION
  Report Type: Spontaneous
  Country: NO (occurrence: NO)
  Receive Date: 20181210
  Receipt Date: 20190702
  Transmission Date: 20191004
  Serious: Yes (Hospitalization, Other)
  Sender: FDA-Public Use
  Company Number: NO-GLAXOSMITHKLINE-NO2018220668

PATIENT
  Sex: Male

DRUGS (2)
  1. TOPAMAX [Suspect]
     Active Substance: TOPIRAMATE
     Indication: EPILEPSY
     Dosage: 125 MG, QD (50MG MORNING, 50 AFTERNOON, 25MG EVENING)
     Route: 065
  2. VOLTAREN [Suspect]
     Active Substance: DICLOFENAC SODIUM
     Indication: PRODUCT USED FOR UNKNOWN INDICATION
     Dosage: UNK
     Route: 065
     Dates: end: 201808

REACTIONS (14)
  - Nerve injury [Unknown]
  - Rash vesicular [Unknown]
  - Gastrointestinal disorder [Unknown]
  - Ill-defined disorder [Unknown]
  - Diabetes mellitus inadequate control [Unknown]
  - C-reactive protein increased [Unknown]
  - Hypertension [Unknown]
  - Nephrolithiasis [Unknown]
  - Neuralgia [Unknown]
  - Gastric ulcer haemorrhage [Unknown]
  - Wound [Unknown]
  - Foot deformity [Unknown]
  - Epilepsy [Unknown]
  - Gangrene [Unknown]

NARRATIVE: CASE EVENT DATE: 20180806
